FAERS Safety Report 24546369 (Version 1)
Quarter: 2024Q4

REPORT INFORMATION
  Report Type: Other
  Country: FR (occurrence: FR)
  Receive Date: 20241024
  Receipt Date: 20241024
  Transmission Date: 20250115
  Serious: Yes (Hospitalization)
  Sender: INNOGENIX, LLC
  Company Number: FR-Innogenix, LLC-2163319

PATIENT
  Age: 24 Month

DRUGS (1)
  1. PROPRANOLOL HYDROCHLORIDE [Suspect]
     Active Substance: PROPRANOLOL HYDROCHLORIDE
     Indication: Intracranial haemangioma

REACTIONS (2)
  - Asthma [Recovered/Resolved]
  - Product use in unapproved indication [Unknown]
